FAERS Safety Report 18192470 (Version 1)
Quarter: 2020Q3

REPORT INFORMATION
  Report Type: Spontaneous
  Country: NL (occurrence: NL)
  Receive Date: 20200825
  Receipt Date: 20200825
  Transmission Date: 20201103
  Serious: Yes (Other)
  Sender: FDA-Public Use
  Company Number: NL-ASTRAZENECA-2020SF05690

PATIENT
  Age: 28 Year
  Sex: Female
  Weight: 64 kg

DRUGS (1)
  1. SYMBICORT [Suspect]
     Active Substance: BUDESONIDE\FORMOTEROL FUMARATE DIHYDRATE
     Indication: DYSPNOEA
     Dosage: 200/6MCG/DOSE 2 X DAILY 1 INHALATION
     Route: 055
     Dates: start: 20200806, end: 20200807

REACTIONS (8)
  - Dyspnoea [Recovering/Resolving]
  - Adrenocortical insufficiency acute [Recovering/Resolving]
  - Abdominal pain [Recovering/Resolving]
  - Feeling abnormal [Recovering/Resolving]
  - Muscle spasms [Recovering/Resolving]
  - Restlessness [Recovering/Resolving]
  - Tremor [Recovering/Resolving]
  - Headache [Recovering/Resolving]

NARRATIVE: CASE EVENT DATE: 20200806
